FAERS Safety Report 13967508 (Version 1)
Quarter: 2017Q3

REPORT INFORMATION
  Report Type: Spontaneous
  Country: CA (occurrence: CA)
  Receive Date: 20170914
  Receipt Date: 20170914
  Transmission Date: 20171128
  Serious: Yes (Other)
  Sender: FDA-Public Use
  Company Number: CA-TEVA-805610ACC

PATIENT
  Age: 61 Year
  Sex: Female
  Weight: 88.53 kg

DRUGS (2)
  1. IMOVANE [Concomitant]
     Active Substance: ZOPICLONE
  2. VENLAFAXINE XR [Suspect]
     Active Substance: VENLAFAXINE HYDROCHLORIDE
     Indication: MAJOR DEPRESSION
     Dosage: 75 MILLIGRAM DAILY;
     Route: 048

REACTIONS (3)
  - Joint stiffness [Recovered/Resolved]
  - Depression [Recovered/Resolved]
  - Tongue movement disturbance [Recovered/Resolved]
